FAERS Safety Report 8866836 (Version 1)
Quarter: 2012Q4

REPORT INFORMATION
  Report Type: 
  Country: US (occurrence: US)
  Receive Date: 20121025
  Receipt Date: 20121025
  Transmission Date: 20130627
  Serious: No
  Sender: FDA-Public Use
  Company Number: US-AMGEN-USASP2012013503

PATIENT
  Sex: Female

DRUGS (14)
  1. ENBREL [Suspect]
     Indication: PRODUCT USED FOR UNKNOWN INDICATION
     Dosage: 25 mg, bid
     Route: 058
  2. CELEBREX [Concomitant]
     Dosage: 50 mg, UNK
  3. LIPITOR [Concomitant]
     Dosage: 10 mg, UNK
  4. CARVEDILOL [Concomitant]
     Dosage: 3.125 mg, UNK
  5. LISINOPRIL [Concomitant]
     Dosage: 5 mg, UNK
  6. HYDROCODONE / IBUPROFEN [Concomitant]
  7. FOLIC ACID [Concomitant]
     Dosage: 1 mg, UNK
  8. VITAMIN E                          /00110501/ [Concomitant]
     Dosage: 200 IU, UNK
  9. NEXIUM                             /01479302/ [Concomitant]
     Dosage: 20 mg, UNK
  10. VITAMIN D /00107901/ [Concomitant]
     Dosage: 400 IU, UNK
  11. FISH OIL [Concomitant]
  12. CALCIUM 500+D [Concomitant]
  13. B COMPLEX                          /00212701/ [Concomitant]
  14. PERIOSTAT                          /00055702/ [Concomitant]

REACTIONS (1)
  - Rash [Unknown]
